FAERS Safety Report 4799937-3 (Version None)
Quarter: 2005Q4

REPORT INFORMATION
  Report Type: 
  Country: None (occurrence: None)
  Receive Date: 20051017
  Receipt Date: 20051007
  Transmission Date: 20060501
  Serious: Yes (Other)
  Sender: FDA-Public Use
  Company Number: JP-BOEHRINGER INGELHEIM PHARMACEUTICALS, INC.-2005-BP-17887NB

PATIENT
  Age: 59 Year
  Sex: Male

DRUGS (7)
  1. MICARDIS [Suspect]
     Indication: HYPERTENSION
     Route: 048
     Dates: end: 20050924
  2. ARTIST [Suspect]
     Route: 048
     Dates: start: 20050808, end: 20050924
  3. SIGMART [Suspect]
     Route: 048
     Dates: start: 20050808, end: 20050924
  4. ASPIRIN [Suspect]
     Route: 048
     Dates: start: 20050808, end: 20050924
  5. PANALDINE [Suspect]
     Route: 048
     Dates: start: 20050808, end: 20050916
  6. LOCHOL [Suspect]
     Route: 048
     Dates: start: 20050808, end: 20050916
  7. FRANDOL S [Concomitant]
     Route: 062
     Dates: start: 20050808, end: 20050924

REACTIONS (3)
  - BLOOD ALKALINE PHOSPHATASE INCREASED [None]
  - GAMMA-GLUTAMYLTRANSFERASE INCREASED [None]
  - HEPATIC FUNCTION ABNORMAL [None]
